FAERS Safety Report 9312667 (Version 1)
Quarter: 2013Q2

REPORT INFORMATION
  Report Type: Spontaneous
  Country: AU (occurrence: AU)
  Receive Date: 20130528
  Receipt Date: 20130528
  Transmission Date: 20140414
  Serious: Yes (Other)
  Sender: FDA-Public Use
  Company Number: AU-GILEAD-2013-0074851

PATIENT
  Sex: Female

DRUGS (3)
  1. AMBRISENTAN [Suspect]
     Indication: PRODUCT USED FOR UNKNOWN INDICATION
     Route: 065
  2. FRUSEMIDE                          /00032601/ [Concomitant]
  3. SPIRONOLACTONE [Concomitant]

REACTIONS (1)
  - Diarrhoea [Unknown]
